FAERS Safety Report 15786886 (Version 3)
Quarter: 2019Q2

REPORT INFORMATION
  Report Type: Spontaneous
  Country: US (occurrence: US)
  Receive Date: 20190103
  Receipt Date: 20190412
  Transmission Date: 20190711
  Serious: Yes (Other)
  Sender: FDA-Public Use
  Company Number: US-ASTRAZENECA-2018SF47708

PATIENT
  Age: 23831 Day
  Sex: Female
  Weight: 121.6 kg

DRUGS (26)
  1. NEXIUM [Suspect]
     Active Substance: ESOMEPRAZOLE MAGNESIUM
     Route: 048
     Dates: start: 2010, end: 2014
  2. PRILOSEC [Suspect]
     Active Substance: OMEPRAZOLE MAGNESIUM
     Dosage: GENERIC
     Route: 048
     Dates: start: 20180322
  3. ASPIRIN. [Concomitant]
     Active Substance: ASPIRIN
  4. KETOCONAZOLE. [Concomitant]
     Active Substance: KETOCONAZOLE
  5. NITROGLYCERIN. [Concomitant]
     Active Substance: NITROGLYCERIN
  6. NEXIUM [Suspect]
     Active Substance: ESOMEPRAZOLE MAGNESIUM
     Route: 048
     Dates: start: 20120423
  7. CARBOXYMETHYLCELLULOSE [Concomitant]
     Active Substance: CARBOXYMETHYLCELLULOSE
  8. OXYCODONE [Concomitant]
     Active Substance: OXYCODONE
  9. ALBUTEROL. [Concomitant]
     Active Substance: ALBUTEROL
  10. DILTIAZEM. [Concomitant]
     Active Substance: DILTIAZEM
  11. FLUTICASONE. [Concomitant]
     Active Substance: FLUTICASONE
  12. OLOPATADINE. [Concomitant]
     Active Substance: OLOPATADINE
  13. PREVACID [Suspect]
     Active Substance: LANSOPRAZOLE
     Route: 065
  14. LACTOBACILLUS CASEI VAR RHAMNOSUS [Concomitant]
  15. CLOBETASOL [Concomitant]
     Active Substance: CLOBETASOL
  16. ACETAMINOPHEN. [Concomitant]
     Active Substance: ACETAMINOPHEN
  17. MOMETASONE [Concomitant]
     Active Substance: MOMETASONE
  18. TRIAMCINOLONE [Concomitant]
     Active Substance: TRIAMCINOLONE
  19. CODEINE GUAIFENESIN [Concomitant]
     Active Substance: CODEINE PHOSPHATE\GUAIFENESIN
  20. DIAZEPAM. [Concomitant]
     Active Substance: DIAZEPAM
  21. VALSARTAN. [Concomitant]
     Active Substance: VALSARTAN
  22. ALPRAZOLAM. [Concomitant]
     Active Substance: ALPRAZOLAM
  23. FUROSEMIDE. [Concomitant]
     Active Substance: FUROSEMIDE
  24. NEXIUM [Suspect]
     Active Substance: ESOMEPRAZOLE MAGNESIUM
     Dosage: GENERIC
     Route: 065
  25. LEVOCETIRIZINE [Concomitant]
     Active Substance: LEVOCETIRIZINE
  26. LEVOTHYROXINE. [Concomitant]
     Active Substance: LEVOTHYROXINE

REACTIONS (5)
  - Renal failure [Unknown]
  - Nephropathy [Unknown]
  - End stage renal disease [Unknown]
  - Chronic kidney disease [Unknown]
  - Acute kidney injury [Unknown]

NARRATIVE: CASE EVENT DATE: 20140706
